FAERS Safety Report 15076400 (Version 1)
Quarter: 2018Q2

REPORT INFORMATION
  Report Type: Spontaneous
  Country: US (occurrence: US)
  Receive Date: 20180627
  Receipt Date: 20180627
  Transmission Date: 20180711
  Serious: No
  Sender: FDA-Public Use
  Company Number: US-MYLANLABS-2018M1045053

PATIENT
  Sex: Male

DRUGS (1)
  1. DYMISTA [Suspect]
     Active Substance: AZELASTINE HYDROCHLORIDE\FLUTICASONE PROPIONATE
     Indication: HYPERSENSITIVITY
     Dosage: 1 BOTTLE, 1 SPIN ONCE A DAY
     Route: 045
     Dates: start: 2017

REACTIONS (3)
  - Expired product administered [Recovered/Resolved]
  - Device malfunction [Unknown]
  - No adverse event [Unknown]
